FAERS Safety Report 8787539 (Version 1)
Quarter: 2012Q4

REPORT INFORMATION
  Report Type: Report from Study
  Country: US (occurrence: US)
  Receive Date: 20120914
  Receipt Date: 20120914
  Transmission Date: 20130627
  Serious: No
  Sender: FDA-Public Use
  Company Number: US-VERTEX PHARMACEUTICAL INC.-AE-2012-009907

PATIENT

DRUGS (12)
  1. INCIVEK [Suspect]
     Indication: HEPATITIS C
     Route: 048
     Dates: start: 201110
  2. PEGASYS [Concomitant]
     Indication: HEPATITIS C
     Route: 058
     Dates: start: 201109, end: 20120622
  3. RIBAPAK [Concomitant]
     Indication: HEPATITIS C
     Route: 048
     Dates: start: 201109, end: 20120622
  4. PREMARIBN [Concomitant]
  5. FUROSEMIDE [Concomitant]
  6. ONDANSETRON HCL [Concomitant]
  7. FLUOXETINE HCL [Concomitant]
  8. LORAZEPAM [Concomitant]
  9. METOPROLOL SUCC ER [Concomitant]
  10. ATACAND [Concomitant]
  11. CARAFATE [Concomitant]
  12. CVS OMEPRAZOLE DR [Concomitant]

REACTIONS (3)
  - Aphthous stomatitis [Unknown]
  - Skin burning sensation [Unknown]
  - Exfoliative rash [Unknown]
